FAERS Safety Report 4378152-1 (Version None)
Quarter: 2004Q2

REPORT INFORMATION
  Report Type: 
  Country: None (occurrence: None)
  Receive Date: 20040616
  Receipt Date: 20040609
  Transmission Date: 20050107
  Serious: Yes (Hospitalization)
  Sender: FDA-Public Use
  Company Number: PHRM2004FR02084

PATIENT
  Age: 31 Year
  Sex: Female
  Weight: 129 kg

DRUGS (5)
  1. METHERGINE [Suspect]
     Dosage: .75 ML, TID
     Route: 048
     Dates: start: 20040513, end: 20040514
  2. LEVONORGESTREL [Concomitant]
     Route: 048
     Dates: start: 20040513, end: 20040514
  3. DAFALGAN [Concomitant]
     Route: 048
     Dates: start: 20040513, end: 20040514
  4. MARCAINE [Concomitant]
     Indication: SPINAL ANAESTHESIA
     Route: 039
     Dates: start: 20040512, end: 20040512
  5. SYNTOCINON [Concomitant]
     Indication: ABORTION SPONTANEOUS
     Dosage: 5 IU, ONCE/SINGLE
     Dates: start: 20040512, end: 20040512

REACTIONS (10)
  - AMNESIA [None]
  - CHILLS [None]
  - CYANOSIS [None]
  - DISORIENTATION [None]
  - INFECTION [None]
  - MUSCULAR WEAKNESS [None]
  - PHOTOPHOBIA [None]
  - SOMNOLENCE [None]
  - TREMOR [None]
  - URTICARIA [None]
